FAERS Safety Report 9931599 (Version 1)
Quarter: 2014Q1

REPORT INFORMATION
  Report Type: Spontaneous
  Country: DE (occurrence: None)
  Receive Date: 20140224
  Receipt Date: 20140224
  Transmission Date: 20141002
  Serious: Yes (Other)
  Sender: FDA-Public Use
  Company Number: AUR-APL-2014-01997

PATIENT
  Age: 41 Year
  Sex: Female
  Weight: 56 kg

DRUGS (1)
  1. AMOXICILLIN+CLAVULANIC ACID (CLAVULANIC ACID, AMOXICILLIN) [Suspect]
     Indication: OTITIS MEDIA
     Dosage: TWICE A DAY (1-0-1), ORAL
     Route: 048
     Dates: start: 20140108, end: 20140123

REACTIONS (1)
  - Cholestasis [None]
